FAERS Safety Report 8155455-6 (Version None)
Quarter: 2012Q1

REPORT INFORMATION
  Report Type: 
  Country: None (occurrence: None)
  Receive Date: 20120215
  Receipt Date: 20120206
  Transmission Date: 20120608
  Serious: Yes (Other)
  Sender: FDA-Public Use
  Company Number: 2012SP004744

PATIENT
  Age: 17 Year
  Sex: Female

DRUGS (1)
  1. NEXPLANON [Suspect]
     Indication: PRODUCT USED FOR UNKNOWN INDICATION
     Dosage: UNK;UNK

REACTIONS (4)
  - TREATMENT NONCOMPLIANCE [None]
  - MATERNAL EXPOSURE TIMING UNSPECIFIED [None]
  - PREGNANCY WITH IMPLANT CONTRACEPTIVE [None]
  - ABORTION INDUCED [None]
